FAERS Safety Report 9479003 (Version 4)
Quarter: 2014Q2

REPORT INFORMATION
  Report Type: Spontaneous
  Country: ES (occurrence: None)
  Receive Date: 20130822
  Receipt Date: 20130919
  Transmission Date: 20141212
  Serious: Yes (Hospitalization)
  Sender: FDA-Public Use
  Company Number: 2013MPI00485

PATIENT
  Age: 40 Year
  Sex: Male
  Weight: 90 kg

DRUGS (7)
  1. BRENTUXIMAB VEDOTIN [Suspect]
     Indication: HODGKIN^S DISEASE
     Route: 042
     Dates: start: 20130725, end: 20130725
  2. DOXORUBICIN [Suspect]
     Indication: HODGKIN^S DISEASE
     Route: 042
     Dates: start: 20130725, end: 20130725
  3. VINBLASTINE [Suspect]
     Indication: HODGKIN^S DISEASE
     Route: 042
     Dates: start: 20130725, end: 20130725
  4. DACARBAZINE [Suspect]
     Indication: HODGKIN^S DISEASE
     Route: 042
     Dates: start: 20130725, end: 20130725
  5. RANITIDINE (RANITIDINE HYDROCHLORIDE) [Concomitant]
  6. POLARAMINE (CHLORPHENAMINE MALEATE) [Concomitant]
  7. ALLOPURINOL [Concomitant]

REACTIONS (5)
  - Encephalitis [None]
  - Pyrexia [None]
  - Hallucination [None]
  - Aphasia [None]
  - Encephalitis [None]
